FAERS Safety Report 10048747 (Version 3)
Quarter: 2014Q2

REPORT INFORMATION
  Report Type: Spontaneous
  Country: DK (occurrence: GB)
  Receive Date: 20140331
  Receipt Date: 20140613
  Transmission Date: 20141212
  Serious: No
  Sender: FDA-Public Use
  Company Number: GB-FRI-1000065989

PATIENT
  Sex: Male

DRUGS (4)
  1. CITALOPRAM [Suspect]
     Indication: DEPRESSION
     Dosage: 20 MG DAILY
     Route: 048
     Dates: start: 20131122, end: 201312
  2. CITALOPRAM [Suspect]
     Indication: DEPRESSION
     Dosage: 10 MG DAILY
     Route: 048
     Dates: end: 20140507
  3. SALBUTAMOL [Concomitant]
     Indication: ASTHMA
     Dosage: (DOSE UNSPECIFIED) AS REQUIRED
     Route: 055
  4. QVAR [Concomitant]
     Indication: ASTHMA
     Dosage: (DOSE UNSPECIFIED) TWICE DAILY
     Route: 055

REACTIONS (2)
  - Haematuria [Recovered/Resolved]
  - Bladder irritation [Recovered/Resolved]
